FAERS Safety Report 6111672-8 (Version None)
Quarter: 2009Q1

REPORT INFORMATION
  Report Type: 
  Country: None (occurrence: None)
  Receive Date: 20090311
  Receipt Date: 20090227
  Transmission Date: 20090719
  Serious: Yes (Hospitalization)
  Sender: FDA-Public Use
  Company Number: ZA-BRISTOL-MYERS SQUIBB COMPANY-14521108

PATIENT
  Age: 33 Year
  Sex: Female

DRUGS (5)
  1. ABATACEPT [Suspect]
     Indication: RHEUMATOID ARTHRITIS
     Dosage: ALSO TAKEN INTRAVENOUSLY
     Dates: start: 20081201, end: 20090216
  2. PLACEBO [Suspect]
     Indication: RHEUMATOID ARTHRITIS
     Dosage: ALSO TAKEN INTRAVENOUSLY
     Dates: start: 20081201, end: 20090216
  3. METHOTREXATE [Suspect]
     Indication: RHEUMATOID ARTHRITIS
     Dates: start: 20071001
  4. FOLIC ACID [Concomitant]
     Dates: start: 20070101
  5. PREDNISONE [Concomitant]
     Dates: start: 20071016

REACTIONS (2)
  - HAEMOLYTIC ANAEMIA [None]
  - RHEUMATOID ARTHRITIS [None]
